FAERS Safety Report 5694034-7 (Version None)
Quarter: 2008Q2

REPORT INFORMATION
  Report Type: 
  Country: None (occurrence: None)
  Receive Date: 20080403
  Receipt Date: 20080331
  Transmission Date: 20081010
  Serious: Yes (Hospitalization)
  Sender: FDA-Public Use
  Company Number: US-MERCK-0804USA00267

PATIENT
  Age: 66 Year
  Sex: Male

DRUGS (13)
  1. VYTORIN [Suspect]
     Indication: BLOOD CHOLESTEROL INCREASED
     Route: 048
     Dates: end: 20080329
  2. ISOSORBIDE MONONITRATE [Concomitant]
     Route: 065
  3. CLONIDINE [Concomitant]
     Route: 065
  4. LABETALOL HYDROCHLORIDE [Concomitant]
     Route: 065
  5. HYDRALAZINE [Concomitant]
     Route: 065
  6. PROCARDIA [Concomitant]
     Route: 065
  7. NEXIUM [Concomitant]
     Route: 065
  8. PROSCAR [Concomitant]
     Route: 065
  9. PLAVIX [Concomitant]
     Route: 065
  10. ALLOPURINOL [Concomitant]
     Route: 065
  11. CASODEX [Concomitant]
     Route: 065
  12. ANTINEOPLASTIC (UNSPECIFIED) [Concomitant]
     Route: 065
  13. [THERAPY UNSPECIFIED] [Concomitant]
     Route: 065

REACTIONS (3)
  - HAEMOGLOBIN DECREASED [None]
  - LOSS OF CONSCIOUSNESS [None]
  - RENAL DISORDER [None]
